FAERS Safety Report 13035570 (Version 1)
Quarter: 2016Q4

REPORT INFORMATION
  Report Type: Spontaneous
  Country: JP (occurrence: JP)
  Receive Date: 20161216
  Receipt Date: 20161216
  Transmission Date: 20170207
  Serious: Yes (Other)
  Sender: FDA-Public Use
  Company Number: JP-BAYER-2016-230829

PATIENT
  Sex: Female

DRUGS (1)
  1. BAYASPIRIN 100 MG [Suspect]
     Active Substance: ASPIRIN
     Indication: CEREBELLAR INFARCTION
     Dosage: UNK
     Route: 048

REACTIONS (4)
  - Traumatic haemorrhage [None]
  - Contusion [None]
  - Skin discolouration [None]
  - Limb injury [None]

NARRATIVE: CASE EVENT DATE: 201606
